FAERS Safety Report 18860088 (Version 1)
Quarter: 2021Q1

REPORT INFORMATION
  Report Type: Spontaneous
  Country: US (occurrence: US)
  Receive Date: 20210208
  Receipt Date: 20210208
  Transmission Date: 20210420
  Serious: Yes (Hospitalization)
  Sender: FDA-Public Use
  Company Number: None

PATIENT
  Age: 69 Year
  Sex: Female

DRUGS (1)
  1. CINACALCET. [Suspect]
     Active Substance: CINACALCET
     Route: 048
     Dates: start: 20190313

REACTIONS (2)
  - Therapy interrupted [None]
  - Cardio-respiratory arrest [None]

NARRATIVE: CASE EVENT DATE: 20210205
